FAERS Safety Report 7714441-8 (Version None)
Quarter: 2011Q3

REPORT INFORMATION
  Report Type: 
  Country: None (occurrence: None)
  Receive Date: 20110829
  Receipt Date: 20110825
  Transmission Date: 20111222
  Serious: Yes (Hospitalization)
  Sender: FDA-Public Use
  Company Number: GB-SP-2011-07107

PATIENT
  Sex: Male

DRUGS (4)
  1. VENTOLIN HFA [Concomitant]
     Indication: ASTHMA
  2. ENALAPRIL MALEATE [Concomitant]
     Indication: HYPERTENSION
  3. INTAL [Concomitant]
     Indication: ASTHMA
  4. IMMUCYST [Suspect]
     Indication: BLADDER CANCER
     Dosage: NOT REPORTED
     Route: 043
     Dates: start: 20110201, end: 20110706

REACTIONS (10)
  - TUBERCULOSIS [None]
  - URETHRAL INJURY [None]
  - CHILLS [None]
  - VOMITING PROJECTILE [None]
  - COLD SWEAT [None]
  - DYSPNOEA [None]
  - ASTHENIA [None]
  - PYREXIA [None]
  - HYPERSENSITIVITY [None]
  - HAEMATURIA [None]
